FAERS Safety Report 7645904-1 (Version None)
Quarter: 2011Q3

REPORT INFORMATION
  Report Type: 
  Country: None (occurrence: None)
  Receive Date: 20110729
  Receipt Date: 20110720
  Transmission Date: 20111222
  Serious: Yes (Death)
  Sender: FDA-Public Use
  Company Number: GB-GENENTECH-309267

PATIENT
  Sex: Female

DRUGS (1)
  1. LUCENTIS [Suspect]
     Indication: PRODUCT USED FOR UNKNOWN INDICATION
     Dosage: UNK
     Route: 065

REACTIONS (5)
  - GAIT DISTURBANCE [None]
  - SMALL CELL LUNG CANCER STAGE UNSPECIFIED [None]
  - METASTASES TO LIVER [None]
  - VISION BLURRED [None]
  - METASTASES TO BONE [None]
